FAERS Safety Report 4649477-7 (Version None)
Quarter: 2005Q2

REPORT INFORMATION
  Report Type: 
  Country: None (occurrence: None)
  Receive Date: 20050428
  Receipt Date: 20050428
  Transmission Date: 20051028
  Serious: Yes (Hospitalization)
  Sender: FDA-Public Use
  Company Number: None

PATIENT
  Sex: Male
  Weight: 86 kg

DRUGS (2)
  1. IRINOTECAN 125MG/M2 [Suspect]
     Indication: GLIOBLASTOMA MULTIFORME
     Dosage: 254 MG
     Dates: start: 20050412
  2. BECACIZUMAB 10MG/KG [Suspect]
     Indication: GLIOBLASTOMA MULTIFORME
     Dosage: 860 MG
     Dates: start: 20050412

REACTIONS (1)
  - PULMONARY EMBOLISM [None]
